FAERS Safety Report 20029802 (Version 2)
Quarter: 2021Q4

REPORT INFORMATION
  Report Type: Other
  Country: RO (occurrence: None)
  Receive Date: 20211103
  Receipt Date: 20211116
  Transmission Date: 20220303
  Serious: Yes (Death, Other)
  Sender: FDA-Public Use
  Company Number: RO-ROCHE-2947844

PATIENT
  Sex: Male

DRUGS (1)
  1. MABTHERA [Suspect]
     Active Substance: RITUXIMAB
     Indication: Leukaemia
     Route: 041

REACTIONS (3)
  - Leukaemia [Fatal]
  - Liver disorder [Unknown]
  - Diabetes mellitus [Unknown]
